FAERS Safety Report 8800747 (Version 1)
Quarter: 2012Q4

REPORT INFORMATION
  Report Type: 
  Country: AU (occurrence: AU)
  Receive Date: 20120921
  Receipt Date: 20120921
  Transmission Date: 20130627
  Serious: Yes (Hospitalization)
  Sender: FDA-Public Use
  Company Number: AU-SANOFI-AVENTIS-2012SA066305

PATIENT
  Age: 87 Year
  Sex: Female

DRUGS (3)
  1. PLAVIX [Suspect]
     Indication: DRUG USE FOR UNKNOWN INDICATION
  2. VENLAFAXINE [Suspect]
     Indication: DRUG USE FOR UNKNOWN INDICATION
  3. LIPITOR /UNK/ [Concomitant]

REACTIONS (9)
  - Balance disorder [Unknown]
  - Drug administration error [Unknown]
  - Motion sickness [Unknown]
  - Skin discolouration [Unknown]
  - Lymphadenopathy [Unknown]
  - Cardiovascular disorder [Unknown]
  - Sleep disorder [Unknown]
  - Memory impairment [Unknown]
  - Hypoaesthesia [Unknown]
